FAERS Safety Report 6775378-4 (Version None)
Quarter: 2010Q2

REPORT INFORMATION
  Report Type: 
  Country: None (occurrence: None)
  Receive Date: 20100617
  Receipt Date: 20100608
  Transmission Date: 20101027
  Serious: Yes (Hospitalization)
  Sender: FDA-Public Use
  Company Number: US-WYE-H15551210

PATIENT
  Age: 75 Year
  Sex: Male
  Weight: 122.58 kg

DRUGS (1)
  1. CHILDREN'S DIMETAPP COLD AND ALLERGY [Suspect]
     Indication: SINUS CONGESTION
     Dosage: 2 TSP EVERY 1 DAY;  CUMULATIVE DOSE TO EVENT: 2 TSP
     Route: 048
     Dates: start: 20100531, end: 20100531

REACTIONS (8)
  - ANGIOEDEMA [None]
  - CARDIAC ARREST [None]
  - CHILLS [None]
  - FEELING COLD [None]
  - HYPERSENSITIVITY [None]
  - LARYNGEAL OEDEMA [None]
  - LOSS OF CONSCIOUSNESS [None]
  - SWOLLEN TONGUE [None]
